FAERS Safety Report 5379838-2 (Version None)
Quarter: 2007Q3

REPORT INFORMATION
  Report Type: 
  Country: None (occurrence: None)
  Receive Date: 20070703
  Receipt Date: 20070615
  Transmission Date: 20080115
  Serious: Yes (Hospitalization)
  Sender: FDA-Public Use
  Company Number: 2007BI010093

PATIENT
  Sex: Female

DRUGS (1)
  1. NATALIZUMAB (NATALIZUMAB) [Suspect]
     Indication: RELAPSING-REMITTING MULTIPLE SCLEROSIS
     Dosage: 300 MG; QM; IV
     Route: 042
     Dates: start: 20061101, end: 20070501

REACTIONS (6)
  - BLISTER [None]
  - DIZZINESS [None]
  - HERPES ZOSTER DISSEMINATED [None]
  - INCORRECT DOSE ADMINISTERED [None]
  - NAUSEA [None]
  - THROAT LESION [None]
